FAERS Safety Report 21937465 (Version 1)
Quarter: 2023Q1

REPORT INFORMATION
  Report Type: Spontaneous
  Country: US (occurrence: None)
  Receive Date: 20230201
  Receipt Date: 20230201
  Transmission Date: 20230418
  Serious: No
  Sender: FDA-Public Use
  Company Number: None

PATIENT
  Age: 7 Year

DRUGS (2)
  1. MUCINEX INSTASOOTHE SORE THROAT PLUS PAIN RELIEF [Suspect]
     Active Substance: BENZOCAINE\MENTHOL
  2. NOREPINEPHRINE BITARTRATE [Suspect]
     Active Substance: NOREPINEPHRINE BITARTRATE

REACTIONS (10)
  - Mental status changes [None]
  - Bradycardia [None]
  - Blood lactic acid increased [None]
  - Methaemoglobinaemia [None]
  - Product label confusion [None]
  - Wrong product stored [None]
  - Wrong technique in product usage process [None]
  - Product selection error [None]
  - Product name confusion [None]
  - Product packaging issue [None]
